FAERS Safety Report 8974415 (Version 1)
Quarter: 2012Q4

REPORT INFORMATION
  Report Type: Spontaneous
  Country: BE (occurrence: None)
  Receive Date: 20121213
  Receipt Date: 20121213
  Transmission Date: 20130627
  Serious: Yes (Hospitalization)
  Sender: FDA-Public Use
  Company Number: B0848543A

PATIENT
  Age: 16 Year
  Sex: Female

DRUGS (2)
  1. ADVAIR [Suspect]
     Indication: ASTHMA
     Dosage: 60 puff(s) / single dose / inhaled
  2. MONTELUKAST SODIUM [Concomitant]

REACTIONS (14)
  - Lactic acidosis [None]
  - Intentional self-injury [None]
  - Intentional overdose [None]
  - Drug abuse [None]
  - Palpitations [None]
  - Chest pain [None]
  - Blood pressure diastolic decreased [None]
  - Sinus tachycardia [None]
  - Respiratory rate increased [None]
  - Tremor [None]
  - Hyperhidrosis [None]
  - Blood potassium decreased [None]
  - Blood glucose increased [None]
  - Blood creatine phosphokinase increased [None]
